FAERS Safety Report 6715060-2 (Version None)
Quarter: 2010Q2

REPORT INFORMATION
  Report Type: 
  Country: None (occurrence: None)
  Receive Date: 20100507
  Receipt Date: 20100430
  Transmission Date: 20101027
  Serious: Yes (Other)
  Sender: FDA-Public Use
  Company Number: CA-ASTRAZENECA-2010SE08372

PATIENT
  Age: 22378 Day
  Sex: Female

DRUGS (17)
  1. SYMBICORT [Suspect]
     Indication: ASTHMA
     Dosage: 2 PUFFS BID
     Route: 055
     Dates: start: 20091204
  2. NASONEX NASAL [Concomitant]
     Dosage: 1-2 SPRAYS IN EACH NOSTRIL DAILY
     Route: 045
     Dates: start: 20100217
  3. LIPITOR [Concomitant]
     Route: 048
     Dates: start: 20100112
  4. LIPITOR [Concomitant]
     Route: 048
     Dates: start: 20100212
  5. NEXIUM [Concomitant]
     Route: 048
     Dates: start: 20100211
  6. SINGULAIR [Concomitant]
     Route: 048
     Dates: start: 20100203
  7. TECTA EC [Concomitant]
     Route: 048
     Dates: start: 20100107
  8. HYZAAR DS [Concomitant]
     Dosage: 100-25 MG, ONE TABLET DAILY
     Route: 048
     Dates: start: 20100116
  9. HYZAAR DS [Concomitant]
     Dosage: 100-25 MG, ONE TABLET DAILY
     Route: 048
     Dates: start: 20100211
  10. VENTOLIN HFA INH [Concomitant]
     Dosage: 1-2 PUFFS AS NEEDED
     Route: 055
     Dates: start: 20100211
  11. SALBUTAMOL [Concomitant]
     Dosage: 2.5 MG/2.5 INHALE CONTENTS OF 1 NEBULE EVERY 6 HOURS AS NEEDED
     Route: 055
  12. HYDROMORPHONE HCL [Concomitant]
     Dosage: 1-2 TABLETS EVERY 4 HOURS AS NEEDED
     Route: 048
     Dates: start: 20100107
  13. HYDROMORPHONE HCL [Concomitant]
     Dosage: I TABLET EVERY 4 TO 6 HOURS AS NEEDED
     Route: 048
     Dates: start: 20100112
  14. HYDROMORPHONE HCL [Concomitant]
     Dosage: ONE TABLET THREE TIMES DAILY FOR 5 DAYS THEN 1 TABLET TWICE DAILY
     Route: 048
     Dates: start: 20100119
  15. MORPHINE [Concomitant]
     Route: 048
     Dates: start: 20100112
  16. ELTROXIN [Concomitant]
     Route: 048
     Dates: start: 20100119
  17. DOXYCYCLINE [Concomitant]
     Route: 048
     Dates: start: 20100212

REACTIONS (5)
  - COUGH [None]
  - DYSGEUSIA [None]
  - INCREASED UPPER AIRWAY SECRETION [None]
  - NAUSEA [None]
  - PNEUMONIA [None]
